FAERS Safety Report 13345840 (Version 2)
Quarter: 2017Q2

REPORT INFORMATION
  Report Type: Report from Study
  Country: None (occurrence: NL)
  Receive Date: 20170317
  Receipt Date: 20170420
  Transmission Date: 20170830
  Serious: Yes (Death, Other)
  Sender: FDA-Public Use
  Company Number: NL-ABBVIE-17P-114-1906964-00

PATIENT
  Sex: Female

DRUGS (1)
  1. DUODOPA [Suspect]
     Active Substance: CARBIDOPA\LEVODOPA
     Indication: PARKINSON^S DISEASE
     Dosage: MD: 8.0, CD: 3.7, ED: 2.0, CND: 1.9
     Route: 050
     Dates: start: 20060330

REACTIONS (3)
  - Parkinson^s disease [Fatal]
  - Bedridden [Not Recovered/Not Resolved]
  - Influenza [Fatal]
